FAERS Safety Report 13142823 (Version 7)
Quarter: 2019Q4

REPORT INFORMATION
  Report Type: Report from Study
  Country: ES (occurrence: ES)
  Receive Date: 20170124
  Receipt Date: 20191226
  Transmission Date: 20200122
  Serious: Yes (Death, Hospitalization, Other)
  Sender: FDA-Public Use
  Company Number: ES-PFIZER INC-2017015585

PATIENT
  Age: 57 Year
  Sex: Female
  Weight: 62.6 kg

DRUGS (2)
  1. PALBOCICLIB [Suspect]
     Active Substance: PALBOCICLIB
     Indication: BREAST CANCER METASTATIC
     Dosage: 125 MG, CYCLIC, DAILY ON DAYS 1-21 EVERY 28-DAY CYCLE
     Dates: start: 20160705, end: 20161212
  2. FULVESTRANT. [Suspect]
     Active Substance: FULVESTRANT
     Indication: BREAST CANCER METASTATIC
     Dosage: 500 MG, EVERY 28 DAYS
     Dates: start: 20160705, end: 20161222

REACTIONS (2)
  - Pneumonitis [Recovered/Resolved with Sequelae]
  - Pneumothorax [Recovered/Resolved]

NARRATIVE: CASE EVENT DATE: 20170111
